FAERS Safety Report 5742365-4 (Version None)
Quarter: 2008Q2

REPORT INFORMATION
  Report Type: 
  Country: None (occurrence: None)
  Receive Date: 20080515
  Receipt Date: 20080512
  Transmission Date: 20081010
  Serious: Yes (Life-Threatening, Hospitalization)
  Sender: FDA-Public Use
  Company Number: 2008SP008891

PATIENT
  Age: 53 Year
  Sex: Female
  Weight: 63.6 kg

DRUGS (5)
  1. TEMODAL [Suspect]
     Indication: GLIOBLASTOMA MULTIFORME
     Dosage: 125 MG; QD; PO; 250 MG; QD; PO
     Route: 048
     Dates: start: 20080107, end: 20080215
  2. TEMODAL [Suspect]
     Indication: GLIOBLASTOMA MULTIFORME
     Dosage: 125 MG; QD; PO; 250 MG; QD; PO
     Route: 048
     Dates: start: 20080313
  3. TEMODAL [Suspect]
     Indication: GLIOBLASTOMA MULTIFORME
     Dosage: 125 MG; QD; PO; 250 MG; QD; PO
     Route: 048
     Dates: start: 20080510
  4. EPREX [Suspect]
     Indication: DRUG USE FOR UNKNOWN INDICATION
  5. DECADRON [Suspect]
     Indication: DRUG USE FOR UNKNOWN INDICATION

REACTIONS (6)
  - ANAEMIA [None]
  - CHEST PAIN [None]
  - DEEP VEIN THROMBOSIS [None]
  - DYSPNOEA [None]
  - EMBOLISM [None]
  - OEDEMA PERIPHERAL [None]
